FAERS Safety Report 9378275 (Version 2)
Quarter: 2013Q4

REPORT INFORMATION
  Report Type: Spontaneous
  Country: HU (occurrence: HU)
  Receive Date: 20130701
  Receipt Date: 20131227
  Transmission Date: 20140711
  Serious: Yes (Other)
  Sender: FDA-Public Use
  Company Number: HU-B.I. PHARMACEUTICALS,INC./RIDGEFIELD-2013-AP-00503AP

PATIENT
  Age: 70 Year
  Sex: Male

DRUGS (1)
  1. TRAJENTA [Suspect]
     Indication: DIABETES MELLITUS
     Dosage: 5 MG
     Route: 048

REACTIONS (1)
  - Thyroid cancer [Not Recovered/Not Resolved]
